FAERS Safety Report 25764446 (Version 1)
Quarter: 2025Q3

REPORT INFORMATION
  Report Type: Spontaneous
  Country: US (occurrence: US)
  Receive Date: 20250905
  Receipt Date: 20250905
  Transmission Date: 20251020
  Serious: No
  Sender: DOMPE FARMACEUTICI
  Company Number: US-FARMAPROD-202501-0097

PATIENT
  Sex: Female

DRUGS (20)
  1. OXERVATE [Suspect]
     Active Substance: CENEGERMIN-BKBJ
     Indication: Neurotrophic keratopathy
     Route: 047
     Dates: start: 20241230
  2. ROSUVASTATIN CALCIUM [Concomitant]
     Active Substance: ROSUVASTATIN CALCIUM
  3. PREGABALIN [Concomitant]
     Active Substance: PREGABALIN
  4. DULOXETINE HYDROCHLORIDE [Concomitant]
     Active Substance: DULOXETINE HYDROCHLORIDE
  5. PROLIA [Concomitant]
     Active Substance: DENOSUMAB
  6. ADVIL  COLD and SINUS [Concomitant]
  7. ASPIRIN [Concomitant]
     Active Substance: ASPIRIN
  8. MAGNESIUM [Concomitant]
     Active Substance: MAGNESIUM
  9. BACLOFEN [Concomitant]
     Active Substance: BACLOFEN
  10. MELATONIN [Concomitant]
     Active Substance: MELATONIN
  11. NM-6603 [Concomitant]
     Active Substance: NM-6603
  12. FISH OIL [Concomitant]
     Active Substance: FISH OIL
  13. VITAMIN C [Concomitant]
     Active Substance: ASCORBIC ACID
  14. VITAMINS [Concomitant]
     Active Substance: VITAMINS
  15. DOCUSATE SODIUM [Concomitant]
     Active Substance: DOCUSATE SODIUM
  16. XIIDRA [Concomitant]
     Active Substance: LIFITEGRAST
  17. LUMIFY [Concomitant]
     Active Substance: BRIMONIDINE TARTRATE
  18. SYSTANE (HYPROMELLOSE 2910 (4000 MPA.S)) [Concomitant]
     Active Substance: HYPROMELLOSE 2910 (4000 MPA.S)
  19. REFRESH TEARS [Concomitant]
     Active Substance: CARBOXYMETHYLCELLULOSE SODIUM
  20. PATADAY ONCE DAILY RELIEF [Concomitant]
     Active Substance: OLOPATADINE HYDROCHLORIDE

REACTIONS (3)
  - Accidental overdose [Unknown]
  - Eye pain [Unknown]
  - Ocular hyperaemia [Unknown]
